FAERS Safety Report 12737580 (Version 3)
Quarter: 2016Q3

REPORT INFORMATION
  Report Type: Spontaneous
  Country: US (occurrence: US)
  Receive Date: 20160912
  Receipt Date: 20160920
  Transmission Date: 20161109
  Serious: Yes (Hospitalization)
  Sender: FDA-Public Use
  Company Number: US-CELGENEUS-USA-2016088213

PATIENT
  Age: 73 Year
  Sex: Male
  Weight: 76 kg

DRUGS (85)
  1. ABRAXANE [Suspect]
     Active Substance: PACLITAXEL
     Indication: PANCREATIC CARCINOMA METASTATIC
     Dosage: TOTAL DOSE 240
     Route: 041
     Dates: start: 20160125, end: 20160125
  2. ABRAXANE [Suspect]
     Active Substance: PACLITAXEL
     Dosage: TOTAL DOSE 240
     Route: 041
     Dates: start: 20160425, end: 20160425
  3. ABRAXANE [Suspect]
     Active Substance: PACLITAXEL
     Dosage: TOTAL DOSE 230
     Route: 041
     Dates: start: 20160912, end: 20160912
  4. GEMCITABINE [Suspect]
     Active Substance: GEMCITABINE\GEMCITABINE HYDROCHLORIDE
     Dosage: TOTAL DOSE 1910
     Route: 041
     Dates: start: 20160321, end: 20160321
  5. GEMCITABINE [Suspect]
     Active Substance: GEMCITABINE\GEMCITABINE HYDROCHLORIDE
     Dosage: TOTAL DOSE 1860
     Route: 041
     Dates: start: 20160516, end: 20160516
  6. GEMCITABINE [Suspect]
     Active Substance: GEMCITABINE\GEMCITABINE HYDROCHLORIDE
     Dosage: TOTAL DOSE 1860
     Route: 041
     Dates: start: 20160620, end: 20160620
  7. GEMCITABINE [Suspect]
     Active Substance: GEMCITABINE\GEMCITABINE HYDROCHLORIDE
     Dosage: TOTAL DOSE 1860
     Route: 041
     Dates: start: 20160808, end: 20160808
  8. DEMCIZUMAB [Suspect]
     Active Substance: DEMCIZUMAB
     Route: 041
     Dates: start: 20160307, end: 20160307
  9. BENADRYL [Concomitant]
     Active Substance: DIPHENHYDRAMINE HYDROCHLORIDE
     Indication: PROPHYLAXIS
     Route: 065
     Dates: start: 20160116, end: 20160120
  10. PROTONIX [Concomitant]
     Active Substance: PANTOPRAZOLE SODIUM
     Indication: GASTROOESOPHAGEAL REFLUX DISEASE
     Route: 065
     Dates: start: 20160311
  11. TRAMADOL. [Concomitant]
     Active Substance: TRAMADOL
     Indication: ORAL PAIN
  12. ABRAXANE [Suspect]
     Active Substance: PACLITAXEL
     Dosage: TOTAL DOSE 240
     Route: 041
     Dates: start: 20160328, end: 20160328
  13. ABRAXANE [Suspect]
     Active Substance: PACLITAXEL
     Dosage: TOTAL DOSE 230
     Route: 041
     Dates: start: 20160725, end: 20160725
  14. GEMCITABINE [Suspect]
     Active Substance: GEMCITABINE\GEMCITABINE HYDROCHLORIDE
     Dosage: TOTAL DOSE 1910
     Route: 041
     Dates: start: 20160328, end: 20160328
  15. GEMCITABINE [Suspect]
     Active Substance: GEMCITABINE\GEMCITABINE HYDROCHLORIDE
     Dosage: TOTAL DOSE 1910
     Route: 041
     Dates: start: 20160502, end: 20160502
  16. GEMCITABINE [Suspect]
     Active Substance: GEMCITABINE\GEMCITABINE HYDROCHLORIDE
     Dosage: TOTAL DOSE 1860
     Route: 041
     Dates: start: 20160523, end: 20160523
  17. ANDROGEL [Concomitant]
     Active Substance: TESTOSTERONE
     Indication: BLOOD TESTOSTERONE ABNORMAL
     Route: 065
     Dates: start: 201512
  18. ASPIRIN. [Concomitant]
     Active Substance: ASPIRIN
     Indication: PRODUCT USED FOR UNKNOWN INDICATION
     Route: 065
  19. AZITHROMYCIN ANHYDROUS. [Concomitant]
     Active Substance: AZITHROMYCIN ANHYDROUS
     Route: 065
     Dates: start: 20160329, end: 20160404
  20. CHLOROSEPTIC SPRAY [Concomitant]
     Indication: PRODUCT USED FOR UNKNOWN INDICATION
     Route: 065
     Dates: start: 20160311
  21. DOCUSATE [Concomitant]
     Active Substance: DOCUSATE
     Indication: CONSTIPATION
     Route: 065
     Dates: start: 20160205
  22. LIPITOR [Concomitant]
     Active Substance: ATORVASTATIN CALCIUM
     Indication: PROPHYLAXIS
     Route: 065
     Dates: start: 20160311
  23. TAMSULOSIN [Concomitant]
     Active Substance: TAMSULOSIN
     Indication: PROSTATOMEGALY
     Route: 065
     Dates: start: 2015
  24. TRAMADOL. [Concomitant]
     Active Substance: TRAMADOL
     Indication: ORAL PAIN
     Route: 065
     Dates: start: 20160125
  25. ABRAXANE [Suspect]
     Active Substance: PACLITAXEL
     Dosage: TOTAL DOSE 240
     Route: 041
     Dates: start: 20160404, end: 20160404
  26. ABRAXANE [Suspect]
     Active Substance: PACLITAXEL
     Dosage: TOTAL DOSE 240
     Route: 041
     Dates: start: 20160418, end: 20160418
  27. ABRAXANE [Suspect]
     Active Substance: PACLITAXEL
     Dosage: TOTAL DOSE 240
     Route: 041
     Dates: start: 20160502, end: 20160502
  28. ABRAXANE [Suspect]
     Active Substance: PACLITAXEL
     Dosage: TOTAL DOSE 230
     Route: 041
     Dates: start: 20160516, end: 20160516
  29. ABRAXANE [Suspect]
     Active Substance: PACLITAXEL
     Dosage: TOTAL DOSE 230
     Route: 041
     Dates: start: 20160620, end: 20160620
  30. ABRAXANE [Suspect]
     Active Substance: PACLITAXEL
     Dosage: TOTAL DOSE 230
     Route: 041
     Dates: start: 20160627, end: 20160627
  31. GEMCITABINE [Suspect]
     Active Substance: GEMCITABINE\GEMCITABINE HYDROCHLORIDE
     Dosage: TOTAL DOSE 1910
     Route: 041
     Dates: start: 20160425, end: 20160425
  32. GEMCITABINE [Suspect]
     Active Substance: GEMCITABINE\GEMCITABINE HYDROCHLORIDE
     Dosage: TOTAL DOSE 1860
     Route: 041
     Dates: start: 20160912, end: 20160912
  33. CLARITIN [Concomitant]
     Active Substance: LORATADINE
     Indication: MULTIPLE ALLERGIES
     Route: 065
     Dates: start: 2015, end: 20160215
  34. MAGNESIUM SULFATE. [Concomitant]
     Active Substance: MAGNESIUM SULFATE
     Indication: PRODUCT USED FOR UNKNOWN INDICATION
     Route: 065
     Dates: start: 20160314, end: 20160315
  35. ABRAXANE [Suspect]
     Active Substance: PACLITAXEL
     Dosage: TOTAL DOSE 240
     Route: 041
     Dates: start: 20160201, end: 20160201
  36. GEMCITABINE [Suspect]
     Active Substance: GEMCITABINE\GEMCITABINE HYDROCHLORIDE
     Dosage: TOTAL DOSE 1910
     Route: 041
     Dates: start: 20160229, end: 20160229
  37. GEMCITABINE [Suspect]
     Active Substance: GEMCITABINE\GEMCITABINE HYDROCHLORIDE
     Dosage: TOTAL DOSE 1860
     Route: 041
     Dates: start: 20160613, end: 20160613
  38. GEMCITABINE [Suspect]
     Active Substance: GEMCITABINE\GEMCITABINE HYDROCHLORIDE
     Dosage: TOTAL DOSE 1860
     Route: 041
     Dates: start: 20160816, end: 20160816
  39. DEMCIZUMAB [Suspect]
     Active Substance: DEMCIZUMAB
     Route: 041
     Dates: start: 20160222, end: 20160222
  40. CEFEPIME [Concomitant]
     Active Substance: CEFEPIME HYDROCHLORIDE
     Indication: PNEUMONIA
     Route: 065
     Dates: start: 20160203, end: 20160204
  41. DUONEB [Concomitant]
     Active Substance: ALBUTEROL SULFATE\IPRATROPIUM BROMIDE
     Indication: WHEEZING
     Route: 065
     Dates: start: 20160205, end: 20160209
  42. METAMUCIL [Concomitant]
     Active Substance: PLANTAGO SEED
     Indication: CONSTIPATION
     Route: 065
     Dates: start: 20160125
  43. PROTONIX [Concomitant]
     Active Substance: PANTOPRAZOLE SODIUM
     Indication: GASTROOESOPHAGEAL REFLUX DISEASE
     Route: 065
     Dates: start: 20160229
  44. ABRAXANE [Suspect]
     Active Substance: PACLITAXEL
     Dosage: TOTAL DOSE 240
     Route: 041
     Dates: start: 20160321, end: 20160321
  45. ABRAXANE [Suspect]
     Active Substance: PACLITAXEL
     Dosage: TOTAL DOSE 230
     Route: 041
     Dates: start: 20160816, end: 20160816
  46. GEMCITABINE [Suspect]
     Active Substance: GEMCITABINE\GEMCITABINE HYDROCHLORIDE
     Dosage: TOTAL DOSE 1860
     Route: 041
     Dates: start: 20160418, end: 20160418
  47. GEMCITABINE [Suspect]
     Active Substance: GEMCITABINE\GEMCITABINE HYDROCHLORIDE
     Dosage: TOTAL DOSE 1860
     Route: 041
     Dates: start: 20160725, end: 20160725
  48. DEMCIZUMAB [Suspect]
     Active Substance: DEMCIZUMAB
     Indication: PANCREATIC CARCINOMA METASTATIC
     Route: 041
     Dates: start: 20160125, end: 20160125
  49. DEMCIZUMAB [Suspect]
     Active Substance: DEMCIZUMAB
     Route: 041
     Dates: start: 20160808, end: 20160808
  50. ATORVASTATIN CALCIUM. [Concomitant]
     Active Substance: ATORVASTATIN CALCIUM
     Indication: LIPIDS
     Route: 065
  51. CIALIS [Concomitant]
     Active Substance: TADALAFIL
     Indication: URINARY RETENTION
     Route: 065
     Dates: start: 20160229, end: 20160406
  52. LASIX [Concomitant]
     Active Substance: FUROSEMIDE
     Indication: ASCITES
     Route: 065
     Dates: start: 20160215
  53. METHYLPREDNISOLONE. [Concomitant]
     Active Substance: METHYLPREDNISOLONE
     Indication: STEROID THERAPY
     Route: 065
     Dates: start: 20160314, end: 20160315
  54. PERFLUTREN LIPID MICROSPHERES [Concomitant]
     Indication: DRUG THERAPY
     Route: 065
     Dates: start: 20160311
  55. VANCOMYCIN [Concomitant]
     Active Substance: VANCOMYCIN
     Indication: PNEUMONIA
     Route: 065
     Dates: start: 20160203, end: 20160204
  56. ABRAXANE [Suspect]
     Active Substance: PACLITAXEL
     Dosage: TOTAL DOSE 240
     Route: 041
     Dates: start: 20160229, end: 20160229
  57. ABRAXANE [Suspect]
     Active Substance: PACLITAXEL
     Dosage: TOTAL DOSE 230
     Route: 041
     Dates: start: 20160523, end: 20160523
  58. ABRAXANE [Suspect]
     Active Substance: PACLITAXEL
     Dosage: TOTAL DOSE 230
     Route: 041
     Dates: start: 20160613, end: 20160613
  59. GEMCITABINE [Suspect]
     Active Substance: GEMCITABINE\GEMCITABINE HYDROCHLORIDE
     Dosage: TOTAL DOSE 1860
     Route: 041
     Dates: start: 20160601, end: 20160601
  60. GEMCITABINE [Suspect]
     Active Substance: GEMCITABINE\GEMCITABINE HYDROCHLORIDE
     Dosage: TOTAL DOSE 1860
     Route: 041
     Dates: start: 20160720, end: 20160720
  61. DEMCIZUMAB [Suspect]
     Active Substance: DEMCIZUMAB
     Route: 041
     Dates: start: 20160321, end: 20160321
  62. DEMCIZUMAB [Suspect]
     Active Substance: DEMCIZUMAB
     Route: 041
     Dates: start: 20160404, end: 20160404
  63. AZITHROMYCIN ANHYDROUS. [Concomitant]
     Active Substance: AZITHROMYCIN ANHYDROUS
     Indication: UPPER RESPIRATORY TRACT INFECTION
     Route: 065
     Dates: start: 201601, end: 20160125
  64. COMPAZINE [Concomitant]
     Active Substance: PROCHLORPERAZINE MALEATE
     Indication: NAUSEA
     Route: 065
     Dates: start: 20160125
  65. CREON [Concomitant]
     Active Substance: PANCRELIPASE AMYLASE\PANCRELIPASE LIPASE\PANCRELIPASE PROTEASE
     Indication: PRODUCT USED FOR UNKNOWN INDICATION
     Route: 065
     Dates: start: 20160111
  66. ZOFRAN [Concomitant]
     Active Substance: ONDANSETRON HYDROCHLORIDE
     Indication: PROPHYLAXIS OF NAUSEA AND VOMITING
     Route: 065
     Dates: start: 20160125
  67. ABRAXANE [Suspect]
     Active Substance: PACLITAXEL
     Dosage: TOTAL DOSE 230
     Route: 041
     Dates: start: 20160601, end: 20160601
  68. GEMCITABINE [Suspect]
     Active Substance: GEMCITABINE\GEMCITABINE HYDROCHLORIDE
     Indication: PANCREATIC CARCINOMA METASTATIC
     Dosage: TOTAL DOSE 1910
     Route: 041
     Dates: start: 20160125, end: 20160125
  69. GEMCITABINE [Suspect]
     Active Substance: GEMCITABINE\GEMCITABINE HYDROCHLORIDE
     Dosage: TOTAL DOSE 1910
     Route: 041
     Dates: start: 20160307, end: 20160307
  70. GEMCITABINE [Suspect]
     Active Substance: GEMCITABINE\GEMCITABINE HYDROCHLORIDE
     Dosage: TOTAL DOSE 1910
     Route: 041
     Dates: start: 20160404, end: 20160404
  71. GEMCITABINE [Suspect]
     Active Substance: GEMCITABINE\GEMCITABINE HYDROCHLORIDE
     Dosage: TOTAL DOSE 1910
     Route: 041
     Dates: start: 20160201, end: 20160201
  72. DEMCIZUMAB [Suspect]
     Active Substance: DEMCIZUMAB
     Route: 041
     Dates: start: 20160725, end: 20160725
  73. ALBUMIN [Concomitant]
     Active Substance: ALBUMIN HUMAN
     Indication: BLOOD ALBUMIN DECREASED
     Route: 065
     Dates: start: 20160314, end: 20160315
  74. CORTISONE [Concomitant]
     Active Substance: CORTISONE\HYDROCORTISONE
     Indication: ADVERSE DRUG REACTION
     Route: 065
     Dates: start: 20160116
  75. PRBC [Concomitant]
     Indication: ANAEMIA
     Route: 065
     Dates: start: 20160314, end: 20160314
  76. PREDNISONE. [Concomitant]
     Active Substance: PREDNISONE
     Indication: ADVERSE DRUG REACTION
     Route: 065
     Dates: start: 20160116, end: 20160120
  77. SULFAMETHOXAZOLE/TRIMETHOPRIM [Concomitant]
     Active Substance: SULFAMETHOXAZOLE\TRIMETHOPRIM
     Indication: CELLULITIS
     Route: 065
     Dates: start: 20160303, end: 20160311
  78. TAMSULOSIN [Concomitant]
     Active Substance: TAMSULOSIN
     Indication: POLLAKIURIA
  79. ABRAXANE [Suspect]
     Active Substance: PACLITAXEL
     Dosage: TOTAL DOSE 240
     Route: 041
     Dates: start: 20160222, end: 20160222
  80. ABRAXANE [Suspect]
     Active Substance: PACLITAXEL
     Dosage: TOTAL DOSE 240
     Route: 041
     Dates: start: 20160307, end: 20160307
  81. ABRAXANE [Suspect]
     Active Substance: PACLITAXEL
     Dosage: TOTAL DOSE 230
     Route: 041
     Dates: start: 20160720, end: 20160720
  82. ABRAXANE [Suspect]
     Active Substance: PACLITAXEL
     Dosage: TOTAL DOSE 230
     Route: 041
     Dates: start: 20160808, end: 20160808
  83. GEMCITABINE [Suspect]
     Active Substance: GEMCITABINE\GEMCITABINE HYDROCHLORIDE
     Dosage: TOTAL DOSE 1910
     Route: 041
     Dates: start: 20160222, end: 20160222
  84. GEMCITABINE [Suspect]
     Active Substance: GEMCITABINE\GEMCITABINE HYDROCHLORIDE
     Dosage: TOTAL DOSE 1860
     Route: 041
     Dates: start: 20160627, end: 20160627
  85. LOVENOX [Concomitant]
     Active Substance: ENOXAPARIN SODIUM
     Indication: PROPHYLAXIS
     Route: 065
     Dates: start: 20160205, end: 20160209

REACTIONS (2)
  - Pleural effusion [Recovered/Resolved]
  - Dyspnoea [Recovered/Resolved]

NARRATIVE: CASE EVENT DATE: 20160822
